FAERS Safety Report 8306862-X (Version None)
Quarter: 2012Q2

REPORT INFORMATION
  Report Type: 
  Country: None (occurrence: None)
  Receive Date: 20120424
  Receipt Date: 20120419
  Transmission Date: 20120825
  Serious: Yes (Other)
  Sender: FDA-Public Use
  Company Number: US-PFIZER INC-2012097785

PATIENT
  Sex: Female
  Weight: 63.49 kg

DRUGS (2)
  1. PRAVASTATIN [Concomitant]
     Indication: BLOOD CHOLESTEROL INCREASED
     Dosage: UNK
  2. LYRICA [Suspect]
     Indication: NEURALGIA
     Dosage: 75 MG, 2X/DAY
     Route: 048
     Dates: start: 20110701, end: 20110701

REACTIONS (3)
  - SWELLING FACE [None]
  - HYPERSENSITIVITY [None]
  - BLOOD CHOLESTEROL INCREASED [None]
